FAERS Safety Report 8892443 (Version 1)
Quarter: 2012Q4

REPORT INFORMATION
  Report Type: 
  Country: IT (occurrence: IT)
  Receive Date: 20121107
  Receipt Date: 20121107
  Transmission Date: 20130627
  Serious: Yes (Hospitalization)
  Sender: FDA-Public Use
  Company Number: IT-GLAXOSMITHKLINE-B0841952A

PATIENT
  Age: 27 Year
  Sex: Female

DRUGS (6)
  1. LAMICTAL [Suspect]
     Indication: BIPOLAR DISORDER
     Dosage: 75MG per day
     Route: 048
     Dates: start: 20120815, end: 20120817
  2. HALDOL [Suspect]
     Indication: BIPOLAR DISORDER
     Dosage: 50MG Per day
     Route: 030
     Dates: start: 20120801, end: 20120821
  3. ZOLPIDEM [Concomitant]
     Indication: INSOMNIA
     Route: 065
  4. XANAX [Concomitant]
     Indication: BIPOLAR DISORDER
     Route: 048
  5. SEREUPIN [Concomitant]
     Indication: BIPOLAR DISORDER
     Route: 065
  6. TALOFEN [Concomitant]
     Indication: BIPOLAR DISORDER
     Route: 065

REACTIONS (8)
  - Eosinophilia [Recovered/Resolved]
  - Transaminases increased [Recovered/Resolved]
  - Pyrexia [Recovered/Resolved]
  - Rash [Recovered/Resolved]
  - Oropharyngeal pain [Recovered/Resolved]
  - Eosinophil count increased [Recovered/Resolved]
  - Human herpesvirus 6 infection [Recovered/Resolved]
  - White blood cell count increased [Recovered/Resolved]
